FAERS Safety Report 11246731 (Version 1)
Quarter: 2015Q3

REPORT INFORMATION
  Report Type: Spontaneous
  Country: US (occurrence: None)
  Receive Date: 20150706
  Receipt Date: 20150706
  Transmission Date: 20151125
  Serious: Yes (Hospitalization, Other)
  Sender: FDA-Public Use
  Company Number: None

PATIENT
  Age: 39 Year
  Sex: Female
  Weight: 65.77 kg

DRUGS (10)
  1. MULTI VITAMIN [Concomitant]
     Active Substance: VITAMINS
  2. PEPTO BISMAL [Concomitant]
  3. WELLBUTRIN [Suspect]
     Active Substance: BUPROPION HYDROCHLORIDE
     Indication: DEPRESSION
     Dosage: TAKEN BY MOUTH
     Route: 048
     Dates: start: 20150604, end: 20150704
  4. WELLBUTRIN [Suspect]
     Active Substance: BUPROPION HYDROCHLORIDE
     Indication: POST-TRAUMATIC STRESS DISORDER
     Dosage: TAKEN BY MOUTH
     Route: 048
     Dates: start: 20150604, end: 20150704
  5. ALLEGE [Concomitant]
  6. CRANBERRY. [Concomitant]
     Active Substance: CRANBERRY
  7. IBUPROFEN. [Concomitant]
     Active Substance: IBUPROFEN
  8. TYLENOL [Concomitant]
     Active Substance: ACETAMINOPHEN
  9. CALCIUIM [Concomitant]
  10. VIT. D [Concomitant]

REACTIONS (9)
  - Wrong drug administered [None]
  - Blepharospasm [None]
  - Insomnia [None]
  - Panic attack [None]
  - Confusional state [None]
  - Palpitations [None]
  - Hallucination [None]
  - Heart rate increased [None]
  - Muscle spasms [None]

NARRATIVE: CASE EVENT DATE: 20150704
